FAERS Safety Report 9880318 (Version 1)
Quarter: 2014Q1

REPORT INFORMATION
  Report Type: Report from Study
  Country: DE (occurrence: DE)
  Receive Date: 20140207
  Receipt Date: 20140207
  Transmission Date: 20141002
  Serious: Yes (Hospitalization)
  Sender: FDA-Public Use
  Company Number: DE-ROCHE-1344095

PATIENT
  Age: 61 Year
  Sex: Female

DRUGS (9)
  1. RITUXIMAB [Suspect]
     Indication: RHEUMATOID ARTHRITIS
     Route: 065
     Dates: start: 20110503
  2. RITUXIMAB [Suspect]
     Route: 065
     Dates: start: 20111128
  3. RITUXIMAB [Suspect]
     Route: 065
     Dates: start: 20120605
  4. RITUXIMAB [Suspect]
     Route: 065
     Dates: start: 20121218
  5. RITUXIMAB [Suspect]
     Route: 065
     Dates: start: 20130603
  6. METHOTREXAT [Suspect]
     Indication: RHEUMATOID ARTHRITIS
     Route: 065
     Dates: start: 20110503
  7. METHOTREXAT [Suspect]
     Route: 065
     Dates: start: 20110503
  8. METHOTREXAT [Suspect]
     Route: 065
     Dates: start: 20120605
  9. METHOTREXAT [Suspect]
     Route: 065
     Dates: start: 20121218

REACTIONS (1)
  - Meniscus injury [Recovered/Resolved]
